FAERS Safety Report 5118394-0 (Version None)
Quarter: 2006Q4

REPORT INFORMATION
  Report Type: 
  Country: None (occurrence: None)
  Receive Date: 20061002
  Receipt Date: 20060920
  Transmission Date: 20070319
  Serious: Yes (Hospitalization)
  Sender: FDA-Public Use
  Company Number: US-AMGEN-US194118

PATIENT
  Age: 79 Year
  Sex: Male

DRUGS (15)
  1. ARANESP [Suspect]
     Indication: RENAL FAILURE CHRONIC
     Dates: start: 20060701, end: 20060908
  2. METOPROLOL [Concomitant]
  3. ZOCOR [Concomitant]
  4. HYDROCODONE BITARTRATE + ACETAMINOPHEN [Concomitant]
  5. HYOSCYAMINE [Concomitant]
  6. NASONEX [Concomitant]
  7. NEXIUM [Concomitant]
  8. NIASPAN [Concomitant]
  9. DETROL [Concomitant]
  10. ACTOS [Concomitant]
  11. NORVASC [Concomitant]
  12. THIAMINE HCL [Concomitant]
  13. FUROSEMIDE [Concomitant]
  14. FLOMAX [Concomitant]
  15. PLAVIX [Concomitant]

REACTIONS (2)
  - BLADDER CANCER [None]
  - BLADDER SPASM [None]
